FAERS Safety Report 4399607-X (Version None)
Quarter: 2004Q3

REPORT INFORMATION
  Report Type: 
  Country: None (occurrence: None)
  Receive Date: 20040712
  Receipt Date: 20040629
  Transmission Date: 20050211
  Serious: Yes (Hospitalization)
  Sender: FDA-Public Use
  Company Number: F01200401414

PATIENT
  Age: 53 Year
  Sex: Male

DRUGS (3)
  1. OXALIPLATIN [Suspect]
     Indication: NON-SMALL CELL LUNG CANCER
     Dosage: 240 MG Q3W (CUMULATIVE DOSE: 720 MG),INTRAVENOUS NOS
     Route: 042
     Dates: start: 20040505
  2. GEMCITABINE [Suspect]
     Indication: NON-SMALL CELL LUNG CANCER
     Dosage: 2300  MG ON DAY 1 AND DAY 8, Q3W(CUMULATIVE DOSE : 1300MG)
     Route: 042
     Dates: start: 20040421, end: 20040421
  3. TRAMADOL HCL [Concomitant]

REACTIONS (8)
  - ANOREXIA [None]
  - C-REACTIVE PROTEIN INCREASED [None]
  - EFFUSION [None]
  - HEPATITIS [None]
  - JAUNDICE [None]
  - LUNG DISORDER [None]
  - NAUSEA [None]
  - PULMONARY EMBOLISM [None]
